FAERS Safety Report 23630261 (Version 2)
Quarter: 2025Q3

REPORT INFORMATION
  Report Type: Report from Study
  Country: US (occurrence: US)
  Receive Date: 20240314
  Receipt Date: 20250909
  Transmission Date: 20251021
  Serious: Yes (Other)
  Sender: ABBVIE
  Company Number: US-ABBVIE-5676168

PATIENT
  Age: 68 Year
  Sex: Female

DRUGS (2)
  1. SKYRIZI [Suspect]
     Active Substance: RISANKIZUMAB-RZAA
     Indication: Psoriasis
     Route: 058
     Dates: start: 20221006
  2. SKYRIZI [Suspect]
     Active Substance: RISANKIZUMAB-RZAA
     Route: 058

REACTIONS (10)
  - Limb operation [Recovering/Resolving]
  - Foot deformity [Recovering/Resolving]
  - Pain in extremity [Not Recovered/Not Resolved]
  - Intervertebral disc degeneration [Recovered/Resolved]
  - Dental implantation [Recovering/Resolving]
  - Peripheral swelling [Unknown]
  - Arthritis [Recovered/Resolved]
  - Muscle spasms [Unknown]
  - Joint surgery [Recovering/Resolving]
  - Limb discomfort [Unknown]

NARRATIVE: CASE EVENT DATE: 20231101
